FAERS Safety Report 6613933-2 (Version None)
Quarter: 2010Q1

REPORT INFORMATION
  Report Type: 
  Country: None (occurrence: None)
  Receive Date: 20100304
  Receipt Date: 20100222
  Transmission Date: 20100710
  Serious: Yes (Death, Life-Threatening, Hospitalization)
  Sender: FDA-Public Use
  Company Number: B0635229A

PATIENT
  Sex: Female

DRUGS (7)
  1. LAMICTAL [Suspect]
     Indication: DRUG USE FOR UNKNOWN INDICATION
     Dosage: 50MG TWICE PER DAY
     Route: 048
  2. TEMODAL [Suspect]
     Indication: GLIOBLASTOMA
     Dosage: 250MG PER DAY
     Route: 048
     Dates: start: 20090105, end: 20090204
  3. CORTANCYL [Suspect]
     Indication: DRUG USE FOR UNKNOWN INDICATION
     Dosage: 40MG PER DAY
     Route: 048
  4. BACTRIM DS [Suspect]
     Dosage: 1UNIT THREE TIMES PER DAY
     Route: 048
  5. XANAX [Suspect]
     Dosage: .25MG PER DAY
     Route: 048
  6. EUPANTOL [Suspect]
     Indication: DRUG USE FOR UNKNOWN INDICATION
     Route: 048
  7. RADIOTHERAPY [Concomitant]
     Indication: GLIOBLASTOMA
     Dates: end: 20090207

REACTIONS (8)
  - BONE MARROW FAILURE [None]
  - EPISTAXIS [None]
  - HAEMORRHAGE [None]
  - METABOLIC DISORDER [None]
  - MULTI-ORGAN FAILURE [None]
  - PURPURA [None]
  - PYREXIA [None]
  - RENAL FAILURE [None]
